FAERS Safety Report 9057622 (Version 1)
Quarter: 2013Q1

REPORT INFORMATION
  Report Type: Spontaneous
  Country: US (occurrence: None)
  Receive Date: 20130204
  Receipt Date: 20130204
  Transmission Date: 20140127
  Serious: Yes (Hospitalization)
  Sender: FDA-Public Use
  Company Number: None

PATIENT
  Age: 90 Year
  Sex: Female
  Weight: 75 kg

DRUGS (11)
  1. COUMADIN [Suspect]
     Indication: PULMONARY EMBOLISM
     Dosage: CHRONIC
     Route: 048
  2. TRAVATAN [Concomitant]
  3. ZOCOR [Concomitant]
  4. RISPERIDONE [Concomitant]
  5. MVI [Concomitant]
  6. METHAZOLAMIDE [Concomitant]
  7. NAMENDA [Concomitant]
  8. ENALAPRIL [Concomitant]
  9. COSOPT [Concomitant]
  10. ALPHAGAN [Concomitant]
  11. KCL [Concomitant]

REACTIONS (4)
  - Haemorrhage [None]
  - Polyp [None]
  - Diverticulum [None]
  - Lower gastrointestinal haemorrhage [None]
